FAERS Safety Report 25723178 (Version 1)
Quarter: 2025Q3

REPORT INFORMATION
  Report Type: Report from Study
  Country: US (occurrence: US)
  Receive Date: 20250825
  Receipt Date: 20250825
  Transmission Date: 20251021
  Serious: Yes (Hospitalization, Other)
  Sender: ABBVIE
  Company Number: US-ABBVIE-6316892

PATIENT
  Age: 53 Year
  Sex: Female

DRUGS (1)
  1. RINVOQ [Suspect]
     Active Substance: UPADACITINIB
     Indication: Dermatitis atopic
     Route: 048
     Dates: start: 20241024

REACTIONS (8)
  - Hypotension [Recovered/Resolved]
  - Blood iron decreased [Recovered/Resolved]
  - Blood iron decreased [Recovered/Resolved]
  - Hypertension [Recovered/Resolved]
  - Haemorrhoids [Unknown]
  - Oedema peripheral [Recovered/Resolved]
  - Dehydration [Unknown]
  - Weight decreased [Recovered/Resolved]

NARRATIVE: CASE EVENT DATE: 20250210
